FAERS Safety Report 23315654 (Version 2)
Quarter: 2023Q4

REPORT INFORMATION
  Report Type: Spontaneous
  Country: AR (occurrence: AR)
  Receive Date: 20231219
  Receipt Date: 20231222
  Transmission Date: 20240109
  Serious: Yes (Disabling, Other)
  Sender: FDA-Public Use
  Company Number: AR-002147023-NVSC2023AR254807

PATIENT
  Age: 62 Year
  Sex: Female

DRUGS (1)
  1. HYRIMOZ [Suspect]
     Active Substance: ADALIMUMAB-ADAZ
     Indication: Rheumatoid arthritis
     Dosage: 40 MG, QW
     Route: 058
     Dates: start: 20230208, end: 202306

REACTIONS (8)
  - Blister [Recovered/Resolved]
  - Drug hypersensitivity [Recovering/Resolving]
  - Urticaria [Unknown]
  - Rash macular [Not Recovered/Not Resolved]
  - Rash erythematous [Unknown]
  - Rash [Unknown]
  - Rheumatoid arthritis [Unknown]
  - Malaise [Unknown]

NARRATIVE: CASE EVENT DATE: 20230530
